FAERS Safety Report 9469672 (Version 2)
Quarter: 2014Q1

REPORT INFORMATION
  Report Type: Spontaneous
  Country: IT (occurrence: IT)
  Receive Date: 20130822
  Receipt Date: 20140201
  Transmission Date: 20141002
  Serious: Yes (Other)
  Sender: FDA-Public Use
  Company Number: IT-ACCORD-018971

PATIENT
  Age: 68 Year
  Sex: Male
  Weight: 67 kg

DRUGS (5)
  1. GEMCITABINE/GEMCITABINE HYDROCHLORIDE [Suspect]
     Indication: LUNG NEOPLASM MALIGNANT
     Dosage: MAH: ACCORD
     Route: 042
     Dates: start: 20121219
  2. CISPLATIN [Suspect]
     Indication: LUNG NEOPLASM MALIGNANT
     Dosage: MAH: HOSPIRA
     Route: 042
     Dates: start: 20121219
  3. RANDIL [Concomitant]
     Dosage: STRENGTH: 50 MG/5 ML, 10 VIALS
     Route: 042
  4. SOLDESAM [Concomitant]
     Dosage: 8MG/2ML: 3 VIALS OF 2 ML
     Route: 042
  5. ONDANSETRON [Concomitant]
     Dosage: 8 MG/4 ML, GLASS VIALS
     Route: 042

REACTIONS (4)
  - Fatigue [Unknown]
  - Dyspnoea [Unknown]
  - Chest pain [Unknown]
  - Nausea [Unknown]
